FAERS Safety Report 26146645 (Version 1)
Quarter: 2025Q4

REPORT INFORMATION
  Report Type: Spontaneous
  Country: EU (occurrence: EU)
  Receive Date: 20251211
  Receipt Date: 20251211
  Transmission Date: 20260117
  Serious: Yes (Other)
  Sender: ALEXION PHARMACEUTICALS
  Company Number: EU-SUN PHARMACEUTICAL INDUSTRIES LTD-2025RR-535687

PATIENT
  Age: 78 Year
  Sex: Male

DRUGS (9)
  1. TICAGRELOR [Suspect]
     Active Substance: TICAGRELOR
     Indication: Antiplatelet therapy
     Dosage: UNK
     Route: 065
  2. METOPROLOL [Suspect]
     Active Substance: METOPROLOL
     Indication: Ventricular arrhythmia
     Dosage: UNK
     Route: 065
  3. DAPAGLIFLOZIN [Suspect]
     Active Substance: DAPAGLIFLOZIN
     Indication: Ventricular arrhythmia
     Dosage: UNK
     Route: 065
  4. ASPIRIN [Suspect]
     Active Substance: ASPIRIN
     Indication: Antiplatelet therapy
     Dosage: UNK
     Route: 065
  5. SACUBITRIL SODIUM [Suspect]
     Active Substance: SACUBITRIL SODIUM
     Indication: Ventricular arrhythmia
     Dosage: UNK
     Route: 065
  6. AMIODARONE [Suspect]
     Active Substance: AMIODARONE
     Indication: Ventricular arrhythmia
     Dosage: UNK
     Route: 065
  7. POTASSIUM [Suspect]
     Active Substance: POTASSIUM
     Indication: Ventricular arrhythmia
     Dosage: UNK
     Route: 065
  8. MAGNESIUM [Suspect]
     Active Substance: MAGNESIUM
     Indication: Ventricular arrhythmia
     Dosage: UNK
     Route: 065
  9. EPLERENONE [Suspect]
     Active Substance: EPLERENONE
     Indication: Ventricular arrhythmia
     Dosage: UNK
     Route: 065

REACTIONS (1)
  - Ventricular fibrillation [Unknown]
